FAERS Safety Report 5436940-4 (Version None)
Quarter: 2007Q3

REPORT INFORMATION
  Report Type: 
  Country: None (occurrence: None)
  Receive Date: 20070831
  Receipt Date: 20070823
  Transmission Date: 20080115
  Serious: Yes (Hospitalization, Other)
  Sender: FDA-Public Use
  Company Number: JP-ASTRAZENECA-2007AP03407

PATIENT
  Age: 28492 Day
  Sex: Male
  Weight: 64 kg

DRUGS (8)
  1. ZD6474 [Suspect]
     Indication: NON-SMALL CELL LUNG CANCER
     Route: 048
     Dates: start: 20070508, end: 20070515
  2. ZD6474 [Suspect]
     Route: 048
     Dates: start: 20070521, end: 20070602
  3. DOCETAXEL [Suspect]
     Indication: NON-SMALL CELL LUNG CANCER
     Route: 041
     Dates: start: 20070508, end: 20070508
  4. DOCETAXEL [Suspect]
     Route: 041
     Dates: start: 20070529, end: 20070529
  5. MARZULENE-S [Concomitant]
     Route: 048
     Dates: start: 20031025, end: 20070610
  6. URSO 250 [Concomitant]
     Route: 048
     Dates: start: 20031106, end: 20070610
  7. BIOFERMIN [Concomitant]
     Route: 048
     Dates: start: 20041209, end: 20070610
  8. LOSARTAN POTASSIUM [Concomitant]
     Route: 048
     Dates: start: 20050706, end: 20070610

REACTIONS (5)
  - ENTEROVESICAL FISTULA [None]
  - PHOTOSENSITIVITY REACTION [None]
  - PNEUMOCYSTIS JIROVECI PNEUMONIA [None]
  - PYREXIA [None]
  - STEVENS-JOHNSON SYNDROME [None]
